FAERS Safety Report 6432684-0 (Version None)
Quarter: 2009Q4

REPORT INFORMATION
  Report Type: 
  Country: None (occurrence: None)
  Receive Date: 20091109
  Receipt Date: 20091104
  Transmission Date: 20100525
  Serious: Yes (Other)
  Sender: FDA-Public Use
  Company Number: GXKR2009DE12111

PATIENT
  Age: 35 Year
  Sex: Male

DRUGS (3)
  1. ACETYLSALICYLIC ACID SRT [Suspect]
     Dosage: 100 MG, QD
     Route: 048
  2. LISINOPRIL [Concomitant]
     Indication: HYPERTENSION
     Dosage: 2.5 MG, QD
     Route: 048
  3. SPASMEX [Concomitant]
     Indication: MICTURITION URGENCY
     Route: 048

REACTIONS (1)
  - PEYRONIE'S DISEASE [None]
